FAERS Safety Report 10018166 (Version 1)
Quarter: 2014Q1

REPORT INFORMATION
  Report Type: Spontaneous
  Country: US (occurrence: US)
  Receive Date: 20140318
  Receipt Date: 20140318
  Transmission Date: 20141002
  Serious: Yes (Hospitalization)
  Sender: FDA-Public Use
  Company Number: US-BRISTOL-MYERS SQUIBB COMPANY-19091784

PATIENT
  Age: 56 Year
  Sex: Male

DRUGS (10)
  1. ERBITUX [Suspect]
     Indication: COLORECTAL CANCER METASTATIC
     Dates: start: 20130524
  2. FOLINIC ACID [Suspect]
     Indication: COLORECTAL CANCER METASTATIC
  3. 5-FU [Suspect]
     Indication: COLORECTAL CANCER METASTATIC
  4. IRINOTECAN [Suspect]
     Indication: COLORECTAL CANCER METASTATIC
  5. AVASTIN [Concomitant]
  6. CAPECITABINE [Concomitant]
  7. BENADRYL [Concomitant]
  8. ALOXI [Concomitant]
  9. DEXAMETHASONE [Concomitant]
  10. ATROPINE [Concomitant]

REACTIONS (1)
  - Anaphylactic reaction [Recovered/Resolved]
